FAERS Safety Report 21788865 (Version 1)
Quarter: 2022Q4

REPORT INFORMATION
  Report Type: Spontaneous
  Country: US (occurrence: None)
  Receive Date: 20221227
  Receipt Date: 20221227
  Transmission Date: 20230113
  Serious: Yes (Hospitalization)
  Sender: FDA-Public Use
  Company Number: None

PATIENT
  Sex: Female

DRUGS (1)
  1. SILDENAFIL [Suspect]
     Active Substance: SILDENAFIL
     Indication: Premature labour
     Dosage: FREQUENCY : EVERY 8 HOURS;?
     Route: 048
     Dates: start: 202212

REACTIONS (1)
  - Hypoxia [None]
